FAERS Safety Report 15665771 (Version 1)
Quarter: 2018Q4

REPORT INFORMATION
  Report Type: Spontaneous
  Country: BR (occurrence: BR)
  Receive Date: 20181128
  Receipt Date: 20181128
  Transmission Date: 20190205
  Serious: Yes (Life-Threatening, Hospitalization, Other)
  Sender: FDA-Public Use
  Company Number: BR-BAYER-2018-217533

PATIENT
  Age: 87 Year
  Sex: Female

DRUGS (2)
  1. ACETYLSALICYLIC ACID (} 100 MG) [Suspect]
     Active Substance: ASPIRIN
     Indication: PULMONARY EMBOLISM
     Dosage: UNK, QD
  2. CILOSTAZOL. [Interacting]
     Active Substance: CILOSTAZOL
     Indication: PULMONARY EMBOLISM
     Dosage: UNK, QD

REACTIONS (10)
  - Haemoglobin decreased [Recovered/Resolved]
  - Hypotension [Recovered/Resolved]
  - Mediastinal haematoma [Recovered/Resolved]
  - Aortic dissection rupture [Recovered/Resolved]
  - Haematemesis [Recovered/Resolved]
  - Pleural effusion [Recovered/Resolved]
  - Labelled drug-drug interaction medication error [Recovered/Resolved]
  - Product administration error [Recovered/Resolved]
  - Gastric haemorrhage [Recovered/Resolved]
  - Tachycardia [Recovered/Resolved]
